FAERS Safety Report 13950102 (Version 2)
Quarter: 2017Q3

REPORT INFORMATION
  Report Type: Spontaneous
  Country: US (occurrence: US)
  Receive Date: 20170908
  Receipt Date: 20170929
  Transmission Date: 20171128
  Serious: Yes (Other)
  Sender: FDA-Public Use
  Company Number: US-009507513-1709USA000466

PATIENT
  Age: 31 Year
  Sex: Female

DRUGS (5)
  1. AMIKACIN [Suspect]
     Active Substance: AMIKACIN
     Dosage: 12.5 MG/KG
     Route: 042
  2. PRIMAXIN IV [Suspect]
     Active Substance: CILASTATIN SODIUM\IMIPENEM
     Indication: MYCOBACTERIUM ABSCESSUS INFECTION
     Dosage: UNK
     Route: 042
     Dates: start: 2016, end: 201606
  3. PRIMAXIN IV [Suspect]
     Active Substance: CILASTATIN SODIUM\IMIPENEM
     Dosage: UNK
     Dates: start: 2016, end: 201609
  4. CLARITHROMYCIN. [Suspect]
     Active Substance: CLARITHROMYCIN
     Indication: MYCOBACTERIUM ABSCESSUS INFECTION
     Route: 048
  5. AMIKACIN [Suspect]
     Active Substance: AMIKACIN
     Indication: MYCOBACTERIUM ABSCESSUS INFECTION
     Dosage: UNK
     Route: 042

REACTIONS (3)
  - Abdominal wall abscess [Recovered/Resolved]
  - Drug ineffective [Not Recovered/Not Resolved]
  - Antimicrobial susceptibility test intermediate [Unknown]

NARRATIVE: CASE EVENT DATE: 2016
